FAERS Safety Report 12158003 (Version 1)
Quarter: 2016Q1

REPORT INFORMATION
  Report Type: Spontaneous
  Country: US (occurrence: US)
  Receive Date: 20160308
  Receipt Date: 20160308
  Transmission Date: 20160526
  Serious: Yes (Hospitalization, Other)
  Sender: FDA-Public Use
  Company Number: US-JNJFOC-20150207741

PATIENT
  Sex: Male

DRUGS (8)
  1. METOPROLOL. [Concomitant]
     Active Substance: METOPROLOL
  2. FLECAINIDE [Concomitant]
     Active Substance: FLECAINIDE
  3. XARELTO [Concomitant]
     Active Substance: RIVAROXABAN
  4. VITAMIN B [Concomitant]
     Active Substance: VITAMIN B
  5. ASPIRIN. [Concomitant]
     Active Substance: ASPIRIN
  6. IMBRUVICA [Suspect]
     Active Substance: IBRUTINIB
     Indication: ANAEMIA OF CHRONIC DISEASE
     Route: 048
  7. CALCIUM CARBONATE W/MAGNESIUM [Concomitant]
  8. IMBRUVICA [Suspect]
     Active Substance: IBRUTINIB
     Indication: ANAEMIA OF CHRONIC DISEASE
     Route: 048
     Dates: start: 20140211

REACTIONS (1)
  - Atrial fibrillation [Unknown]

NARRATIVE: CASE EVENT DATE: 20140227
